FAERS Safety Report 10010600 (Version 1)
Quarter: 2014Q1

REPORT INFORMATION
  Report Type: Spontaneous
  Country: US (occurrence: None)
  Receive Date: 20140312
  Receipt Date: 20140312
  Transmission Date: 20141002
  Serious: Yes (Other)
  Sender: FDA-Public Use
  Company Number: None

PATIENT
  Sex: Female
  Weight: 68 kg

DRUGS (5)
  1. NEUTROGENA DEEP CLEAN INVIGORATING FOAMING SCRUB [Suspect]
     Indication: THERAPEUTIC SKIN CARE TOPICAL
     Route: 061
     Dates: start: 20140124, end: 20140124
  2. OMEPRAZOLE [Concomitant]
  3. BABY ASPIRIN [Concomitant]
  4. PAROXETINE [Concomitant]
  5. VITAMIN D [Concomitant]

REACTIONS (12)
  - Swelling face [None]
  - Lip swelling [None]
  - Local swelling [None]
  - Local swelling [None]
  - Throat tightness [None]
  - Pharyngeal oedema [None]
  - Dyspnoea [None]
  - Ear pain [None]
  - Pain in jaw [None]
  - Asthenia [None]
  - Fatigue [None]
  - Hypersensitivity [None]
